FAERS Safety Report 13022734 (Version 2)
Quarter: 2016Q4

REPORT INFORMATION
  Report Type: Spontaneous
  Country: BE (occurrence: BE)
  Receive Date: 20161213
  Receipt Date: 20161216
  Transmission Date: 20170207
  Serious: Yes (Other)
  Sender: FDA-Public Use
  Company Number: BE-PFIZER INC-2016571830

PATIENT

DRUGS (1)
  1. PANTOMED [Suspect]
     Active Substance: DEXPANTHENOL
     Dosage: UNK
     Route: 065

REACTIONS (1)
  - Renal failure [Unknown]
